FAERS Safety Report 5725456-3 (Version None)
Quarter: 2008Q2

REPORT INFORMATION
  Report Type: 
  Country: None (occurrence: None)
  Receive Date: 20080501
  Receipt Date: 20080429
  Transmission Date: 20081010
  Serious: Yes (Death)
  Sender: FDA-Public Use
  Company Number: GB-TEVA-170938ISR

PATIENT
  Age: 71 Year
  Sex: Female

DRUGS (1)
  1. ALENDRONIC ACID [Suspect]
     Indication: SPINAL COMPRESSION FRACTURE
     Route: 048
     Dates: start: 20080219, end: 20080316

REACTIONS (1)
  - DUODENAL ULCER PERFORATION [None]
